FAERS Safety Report 9056562 (Version 1)
Quarter: 2013Q1

REPORT INFORMATION
  Report Type: Spontaneous
  Country: RU (occurrence: RU)
  Receive Date: 20130204
  Receipt Date: 20130204
  Transmission Date: 20140127
  Serious: Yes (Other)
  Sender: FDA-Public Use
  Company Number: RU-VIIV HEALTHCARE LIMITED-B0864463A

PATIENT
  Age: 46 None
  Sex: Female
  Weight: 65 kg

DRUGS (5)
  1. EPIVIR [Suspect]
     Indication: HIV INFECTION
     Dosage: .6G PER DAY
     Route: 048
     Dates: start: 20111102
  2. ZIAGEN [Suspect]
     Indication: HIV INFECTION
     Dosage: .6G PER DAY
     Route: 048
     Dates: start: 20121223, end: 20130103
  3. DARUNAVIR [Suspect]
     Indication: HIV INFECTION
     Dosage: 1.2G PER DAY
     Route: 048
     Dates: start: 20111102
  4. RITONAVIR [Suspect]
     Indication: HIV INFECTION
     Route: 048
     Dates: start: 20111102
  5. NICAVIR [Suspect]
     Indication: PRODUCT USED FOR UNKNOWN INDICATION
     Route: 065
     Dates: start: 2011

REACTIONS (4)
  - Tachycardia [Recovered/Resolved]
  - Vomiting [Recovered/Resolved]
  - Diarrhoea [Recovered/Resolved]
  - Anaemia [Unknown]
